FAERS Safety Report 15006931 (Version 2)
Quarter: 2025Q1

REPORT INFORMATION
  Report Type: Spontaneous
  Country: NL (occurrence: NL)
  Receive Date: 20180613
  Receipt Date: 20250305
  Transmission Date: 20250409
  Serious: Yes (Other)
  Sender: MYLAN
  Company Number: NL-GKKIN-20171214- PI304695-12

PATIENT

DRUGS (1)
  1. METHOTREXATE [Suspect]
     Active Substance: METHOTREXATE
     Indication: Psoriasis

REACTIONS (2)
  - Hepatic steatosis [Unknown]
  - Hepatic fibrosis [Unknown]
